FAERS Safety Report 8843779 (Version 1)
Quarter: 2012Q4

REPORT INFORMATION
  Report Type: 
  Country: NL (occurrence: NL)
  Receive Date: 20121016
  Receipt Date: 20121016
  Transmission Date: 20130627
  Serious: Yes (Death)
  Sender: FDA-Public Use
  Company Number: NL-ABBOTT-12P-114-0995726-00

PATIENT
  Age: 43 Year
  Sex: Male

DRUGS (11)
  1. CYCLOSPORINE [Suspect]
     Indication: IMMUNOSUPPRESSION
     Dosage: blood trough level 400mcg/l
  2. CYCLOSPORINE [Suspect]
     Dosage: tapered at 3 weeks blood trough level 150 mcg/l
  3. CYCLOSPORINE [Suspect]
     Dosage: trough level 80 mcg/l
  4. METHYLPREDNISOLONE [Concomitant]
     Indication: LUNG TRANSPLANT REJECTION
     Dosage: 500-1000 MG
     Route: 042
  5. METHYLPREDNISOLONE [Concomitant]
     Dosage: 500-1000MG
     Route: 042
  6. METHYLPREDNISOLONE [Concomitant]
     Dosage: 500-1000 MG
     Route: 042
  7. METHYLPREDNISOLONE [Concomitant]
  8. AZATHIOPRINE [Concomitant]
     Indication: IMMUNOSUPPRESSION
     Dosage: 1-3 MG/KG
  9. PREDNISOLONE [Concomitant]
     Indication: PRODUCT USED FOR UNKNOWN INDICATION
  10. HORSE ANTI-T LYMPHOCYTE GLOBULIN [Concomitant]
     Indication: TRANSPLANT REJECTION
  11. MYCOFENOLATE MOFETIL [Concomitant]
     Indication: IMMUNOSUPPRESSION

REACTIONS (1)
  - Progressive multifocal leukoencephalopathy [Fatal]
